FAERS Safety Report 5398014-0 (Version None)
Quarter: 2007Q3

REPORT INFORMATION
  Report Type: 
  Country: None (occurrence: None)
  Receive Date: 20070726
  Receipt Date: 20060906
  Transmission Date: 20080115
  Serious: No
  Sender: FDA-Public Use
  Company Number: US-BRISTOL-MYERS SQUIBB COMPANY-13502950

PATIENT
  Sex: Female

DRUGS (2)
  1. MAXIPIME [Suspect]
     Indication: URINARY TRACT INFECTION
     Route: 030
     Dates: start: 20060101
  2. LIDOCAINE [Concomitant]
     Route: 030
     Dates: start: 20060101

REACTIONS (2)
  - DIZZINESS [None]
  - HEADACHE [None]
